FAERS Safety Report 9951406 (Version 1)
Quarter: 2014Q1

REPORT INFORMATION
  Report Type: Report from Study
  Country: US (occurrence: US)
  Receive Date: 20140304
  Receipt Date: 20140304
  Transmission Date: 20141002
  Serious: Yes (Hospitalization)
  Sender: FDA-Public Use
  Company Number: US-ABBVIE-13P-163-1068808-00

PATIENT
  Age: 64 Year
  Sex: Female

DRUGS (12)
  1. HUMIRA [Suspect]
     Indication: CROHN^S DISEASE
     Dates: start: 20130107
  2. PROPRANOLOL [Concomitant]
     Indication: HYPERTENSION
  3. PREDNISONE [Concomitant]
     Indication: CROHN^S DISEASE
     Dosage: DAILY
  4. FOLIC ACID [Concomitant]
     Indication: PRODUCT USED FOR UNKNOWN INDICATION
     Dosage: DAILY
  5. METFORMIN [Concomitant]
     Indication: DIABETES MELLITUS
     Dosage: DAILY
  6. LANSOPRAZOLE [Concomitant]
     Indication: PROPHYLAXIS AGAINST GASTROINTESTINAL ULCER
     Dosage: DAILY
  7. AMITRIPTYLINE [Concomitant]
     Indication: DEPRESSION
     Dosage: AT BEDTIME
  8. AMITRIPTYLINE [Concomitant]
     Indication: SLEEP DISORDER THERAPY
  9. LITHIUM CARBONATE [Concomitant]
     Indication: DEPRESSION
     Dosage: AT BEDTIME
  10. LITHIUM CARBONATE [Concomitant]
     Indication: SLEEP DISORDER THERAPY
  11. SULFASALAZINE [Concomitant]
     Indication: CROHN^S DISEASE
  12. FERROUS SULFATE [Concomitant]
     Indication: BLOOD IRON DECREASED

REACTIONS (2)
  - Sepsis [Not Recovered/Not Resolved]
  - General physical health deterioration [Unknown]
